FAERS Safety Report 7384301-3 (Version None)
Quarter: 2011Q1

REPORT INFORMATION
  Report Type: 
  Country: None (occurrence: None)
  Receive Date: 20110330
  Receipt Date: 20110324
  Transmission Date: 20110831
  Serious: Yes (Other)
  Sender: FDA-Public Use
  Company Number: IR-GENZYME-FLUD-1000913

PATIENT
  Age: 30 Month
  Sex: Female

DRUGS (14)
  1. FLUDARA [Suspect]
     Indication: WHITE BLOOD CELL DISORDER
  2. ANTI-THYMOCYTE GLOBULIN NOS [Suspect]
     Indication: BONE MARROW CONDITIONING REGIMEN
     Dosage: 10 MG/KG, QD ON DAYS -4 AND -1
     Route: 065
  3. METHYLPREDNISOLONE [Concomitant]
     Indication: PROPHYLAXIS AGAINST GRAFT VERSUS HOST DISEASE
     Route: 065
  4. ACYCLOVIR [Concomitant]
     Indication: ANTIVIRAL PROPHYLAXIS
     Route: 065
  5. ACYCLOVIR [Concomitant]
  6. NEUPOGEN [Concomitant]
     Indication: PROPHYLAXIS
     Dosage: FROM DAY +8
     Route: 065
  7. ITRACONAZOLE [Concomitant]
     Indication: ANTIFUNGAL PROPHYLAXIS
     Route: 067
  8. FLUDARA [Suspect]
     Indication: BONE MARROW CONDITIONING REGIMEN
     Dosage: 30 MG/M2, QD ON DAYS -8 TO -4
     Route: 042
  9. MELPHALAN [Suspect]
     Indication: BONE MARROW CONDITIONING REGIMEN
     Dosage: 70 MG/M2, QD ON DAYS -3 AND -2
     Route: 042
  10. TRIMETHOPRIM + SULFAMETHOXAZOLE [Concomitant]
     Indication: ANTIFUNGAL PROPHYLAXIS
     Dosage: UNK
     Route: 065
  11. IMMUNE GLOBULIN NOS [Concomitant]
     Indication: PRODUCT USED FOR UNKNOWN INDICATION
     Dosage: .5 G/KG, 1X/W
     Route: 042
  12. ANTI-THYMOCYTE GLOBULIN NOS [Suspect]
     Indication: WHITE BLOOD CELL DISORDER
  13. CYCLOSPORINE [Concomitant]
     Indication: PROPHYLAXIS AGAINST GRAFT VERSUS HOST DISEASE
     Route: 065
  14. MELPHALAN [Suspect]
     Indication: WHITE BLOOD CELL DISORDER

REACTIONS (2)
  - PSEUDOMONAL SEPSIS [None]
  - ACUTE GRAFT VERSUS HOST DISEASE IN SKIN [None]
